FAERS Safety Report 14532183 (Version 14)
Quarter: 2020Q1

REPORT INFORMATION
  Report Type: Report from Study
  Country: US (occurrence: US)
  Receive Date: 20180214
  Receipt Date: 20200317
  Transmission Date: 20200409
  Serious: Yes (Hospitalization, Other)
  Sender: FDA-Public Use
  Company Number: US-ACTELION-A-US2016-130198

PATIENT
  Age: 61 Year
  Sex: Male
  Weight: 88.44 kg

DRUGS (9)
  1. REMODULIN [Suspect]
     Active Substance: TREPROSTINIL
     Indication: PRODUCT USED FOR UNKNOWN INDICATION
     Dosage: UNK
     Route: 065
  2. REMODULIN [Suspect]
     Active Substance: TREPROSTINIL
     Dosage: UNK
     Route: 058
     Dates: start: 2019
  3. OPSUMIT [Suspect]
     Active Substance: MACITENTAN
     Indication: PULMONARY ARTERIAL HYPERTENSION
     Dosage: 10 MG, QD
     Route: 048
     Dates: start: 20140225
  4. OPSUMIT [Suspect]
     Active Substance: MACITENTAN
     Dosage: 10 MG, QD
     Route: 048
  5. OPSUMIT [Suspect]
     Active Substance: MACITENTAN
     Dosage: 10 MG, QD
     Route: 048
  6. ORENITRAM [Suspect]
     Active Substance: TREPROSTINIL
     Indication: PRODUCT USED FOR UNKNOWN INDICATION
     Dosage: UNK
     Route: 065
  7. ORENITRAM [Suspect]
     Active Substance: TREPROSTINIL
     Dosage: 11 MG, UNK
     Route: 065
  8. ORENITRAM [Suspect]
     Active Substance: TREPROSTINIL
     Dosage: 10 MG, UNK
     Route: 065
  9. COUMADIN [Concomitant]
     Active Substance: WARFARIN SODIUM

REACTIONS (52)
  - Insomnia [Unknown]
  - Blood pressure decreased [Unknown]
  - Narcolepsy [Unknown]
  - Sinusitis [Unknown]
  - Angina pectoris [Unknown]
  - Infusion site haemorrhage [Unknown]
  - Hypoaesthesia oral [Unknown]
  - Dysgeusia [Unknown]
  - Dyspnoea [Unknown]
  - Nausea [Unknown]
  - Somnolence [Unknown]
  - Infusion site pain [Unknown]
  - Infusion site erythema [Unknown]
  - Diarrhoea [Unknown]
  - Bronchitis viral [Recovering/Resolving]
  - Headache [Unknown]
  - Anhedonia [Unknown]
  - Gastrooesophageal reflux disease [Unknown]
  - Malaise [Unknown]
  - Sneezing [Recovering/Resolving]
  - Rhinorrhoea [Recovering/Resolving]
  - Cataract operation [Unknown]
  - Cough [Unknown]
  - Eye pain [Unknown]
  - Productive cough [Unknown]
  - Decreased appetite [Unknown]
  - Chills [Unknown]
  - Influenza [Recovered/Resolved]
  - Chest pain [Unknown]
  - Unevaluable event [Recovering/Resolving]
  - Orthostatic hypotension [Unknown]
  - Pain in jaw [Unknown]
  - Sleep apnoea syndrome [Unknown]
  - Palpitations [Unknown]
  - Oxygen saturation decreased [Unknown]
  - Thrombosis [Unknown]
  - Transient ischaemic attack [Unknown]
  - Haemoptysis [Unknown]
  - Nasopharyngitis [Unknown]
  - Infusion site infection [Unknown]
  - Cataract [Unknown]
  - Blood blister [Unknown]
  - Dizziness [Unknown]
  - International normalised ratio abnormal [Unknown]
  - Sensory loss [Unknown]
  - Muscular weakness [Unknown]
  - Flushing [Unknown]
  - Adverse event [Unknown]
  - Pyrexia [Unknown]
  - Respiratory tract congestion [Unknown]
  - Hypoaesthesia [Unknown]
  - Heart rate increased [Recovered/Resolved]

NARRATIVE: CASE EVENT DATE: 20161115
